FAERS Safety Report 19189886 (Version 1)
Quarter: 2021Q2

REPORT INFORMATION
  Report Type: Spontaneous
  Country: US (occurrence: US)
  Receive Date: 20210428
  Receipt Date: 20210428
  Transmission Date: 20210717
  Serious: Yes (Disabling)
  Sender: FDA-Public Use
  Company Number: None

PATIENT
  Age: 10 Year
  Sex: Male
  Weight: 28.8 kg

DRUGS (6)
  1. NATURES PLUS [Concomitant]
  2. CALCIUM [Concomitant]
     Active Substance: CALCIUM
  3. NORDIC NATURALS VITAMIN D3 [Concomitant]
  4. LUPRON [Suspect]
     Active Substance: LEUPROLIDE ACETATE
     Indication: PRECOCIOUS PUBERTY
     Dosage: ?          QUANTITY:1 INJECTION(S);OTHER FREQUENCY:ONCE EVERY 90 DAYS;?
     Route: 030
     Dates: start: 20210129, end: 20210130
  5. NORDITROPIN [Concomitant]
     Active Substance: SOMATROPIN
  6. NORDIC NATURALS MULTIVITAMIN ALL CHEWABLES [Concomitant]

REACTIONS (4)
  - Renal pain [None]
  - Injection site pain [None]
  - Dermal cyst [None]
  - Dysuria [None]

NARRATIVE: CASE EVENT DATE: 20210331
